FAERS Safety Report 4467868-4 (Version None)
Quarter: 2004Q3

REPORT INFORMATION
  Report Type: 
  Country: None (occurrence: None)
  Receive Date: 20040927
  Receipt Date: 20040909
  Transmission Date: 20050211
  Serious: Yes (Death)
  Sender: FDA-Public Use
  Company Number: 238646

PATIENT
  Age: 73 Year
  Sex: Female
  Weight: 55 kg

DRUGS (9)
  1. NOVOSEVEN [Suspect]
     Indication: ACQUIRED HAEMOPHILIA WITH ANTI FVIII, XI, OR XIII
     Dosage: 87 UG/KG, INTRAVENOUS; 65 UG/KG, INTRAVENOUS;  65 UG/KG, INTRAVENOUS
     Route: 042
     Dates: start: 20040801, end: 20040801
  2. NOVOSEVEN [Suspect]
     Indication: ACQUIRED HAEMOPHILIA WITH ANTI FVIII, XI, OR XIII
     Dosage: 87 UG/KG, INTRAVENOUS; 65 UG/KG, INTRAVENOUS;  65 UG/KG, INTRAVENOUS
     Route: 042
     Dates: start: 20040801, end: 20040801
  3. NOVOSEVEN [Suspect]
     Indication: ACQUIRED HAEMOPHILIA WITH ANTI FVIII, XI, OR XIII
     Dosage: 87 UG/KG, INTRAVENOUS; 65 UG/KG, INTRAVENOUS;  65 UG/KG, INTRAVENOUS
     Route: 042
     Dates: start: 20040801, end: 20040801
  4. PREDNISOLONE [Concomitant]
  5. SOLU-MEDROL [Concomitant]
  6. RITUXAN [Concomitant]
  7. TRANSAMIN (TRANEXAMIC ACID) [Concomitant]
  8. CATABON (DOPAMINE HYDROCHLORIDE) [Concomitant]
  9. DIGOXIN [Concomitant]

REACTIONS (7)
  - ATRIAL FIBRILLATION [None]
  - CARDIAC ARREST [None]
  - CARDIAC FAILURE ACUTE [None]
  - DYSPNOEA [None]
  - PAIN [None]
  - PULMONARY HAEMATOMA [None]
  - TACHYCARDIA [None]
